FAERS Safety Report 21377919 (Version 2)
Quarter: 2022Q4

REPORT INFORMATION
  Report Type: Spontaneous
  Country: US (occurrence: US)
  Receive Date: 20220926
  Receipt Date: 20221129
  Transmission Date: 20230113
  Serious: Yes (Hospitalization, Other)
  Sender: FDA-Public Use
  Company Number: US-TAKEDA-2022TUS067065

PATIENT
  Sex: Female
  Weight: 53.5 kg

DRUGS (3)
  1. NINLARO [Suspect]
     Active Substance: IXAZOMIB CITRATE
     Indication: Plasma cell myeloma
     Dosage: 3 MILLIGRAM
     Route: 048
     Dates: start: 20220910
  2. XPOVIO [Suspect]
     Active Substance: SELINEXOR
     Indication: Product used for unknown indication
     Dosage: 40 MILLIGRAM, 1/WEEK
     Route: 048
     Dates: start: 20220801
  3. XPOVIO [Suspect]
     Active Substance: SELINEXOR
     Dosage: 40 MILLIGRAM, 1/WEEK
     Route: 048
     Dates: start: 20220804, end: 20220823

REACTIONS (5)
  - Loss of consciousness [Unknown]
  - Dementia [Unknown]
  - Pneumonia [Unknown]
  - Confusional state [Unknown]
  - Memory impairment [Unknown]
